FAERS Safety Report 5857233-7 (Version None)
Quarter: 2008Q3

REPORT INFORMATION
  Report Type: 
  Country: None (occurrence: None)
  Receive Date: 20080821
  Receipt Date: 20080808
  Transmission Date: 20090109
  Serious: Yes (Hospitalization)
  Sender: FDA-Public Use
  Company Number: 02100-JPN-05-0151

PATIENT
  Age: 68 Year
  Sex: Male
  Weight: 71.5 kg

DRUGS (25)
  1. PLETAL [Suspect]
     Indication: CEREBRAL INFARCTION
     Dosage: 100 MG, BID ORAL
     Route: 048
     Dates: start: 20041015, end: 20041021
  2. PLETAL [Suspect]
     Indication: CEREBRAL INFARCTION
     Dosage: 100 MG, BID ORAL
     Route: 048
     Dates: start: 20041021
  3. PLETAL [Suspect]
     Indication: CEREBRAL INFARCTION
     Dosage: 81 MG, QD, ORAL
     Route: 048
     Dates: start: 20041015, end: 20041021
  4. PLETAL [Suspect]
     Indication: CEREBRAL INFARCTION
     Dosage: 81 MG, QD, ORAL
     Route: 048
     Dates: start: 20041021
  5. PAXIL [Suspect]
     Indication: DEPRESSION
     Dosage: 20 MG, QD, ORAL; 30 MG, QD; ORAL
     Route: 048
     Dates: start: 20050421
  6. PAXIL [Suspect]
     Indication: DEPRESSION
     Dosage: 20 MG, QD, ORAL; 30 MG, QD; ORAL
     Route: 048
     Dates: start: 20050525
  7. ZOLPIDEM TARTRATE [Concomitant]
  8. GLYCERIN (GLYCEROL) SUPPOSITORY [Concomitant]
  9. PURSENNID (SENNOSIDE) TABLET [Concomitant]
  10. AMLODIN (AMLODIPINE BESILATE) TABLET [Concomitant]
  11. DEYSREL (TRAZODONE HYDROCHLORIDE) [Concomitant]
  12. BLOSTAR (FAMOTIDINE) TABLET [Concomitant]
  13. CONSTAN (ALPRAZOLAM) TABLET [Concomitant]
  14. LIVALO (PITAVASTATIN CALCIUM) TABLET [Concomitant]
  15. SOL-MELCORT (METHYLPREDNISOLONE SODIUM SUCCINATE) INJECTION [Concomitant]
  16. VOLTAREN [Concomitant]
  17. TIZANIDINE HCL [Concomitant]
  18. VANCOMIN (MECOBALAMIN) TABLET [Concomitant]
  19. PYRINAZIN (PARACETAMOL) POWDER [Concomitant]
  20. CATLEP (INDOMETACIN) TAPE (INCLUDING POULTICE) [Concomitant]
  21. PANTOSIN (PANTETHINE) POWDER [Concomitant]
  22. HEAVY MAGNESIUM OXIDE (MAGNESIUM OXIDE) [Concomitant]
  23. AMLODIN OD (AMLODIPINE BESILATE) TABLET [Concomitant]
  24. PROPETO (WHITE PETROLATUM) OINTMENT, CREAM [Concomitant]
  25. DERMOVATE (CLOBETASOL PROPIONATE) OINTMENT, CREAM [Concomitant]

REACTIONS (21)
  - BLOOD CHLORIDE DECREASED [None]
  - BLOOD PRESSURE INCREASED [None]
  - BLOOD SODIUM DECREASED [None]
  - BRONCHITIS [None]
  - CERVICAL VERTEBRAL FRACTURE [None]
  - CHEST DISCOMFORT [None]
  - CONDITION AGGRAVATED [None]
  - DIABETES MELLITUS [None]
  - DYSPNOEA [None]
  - ELECTROLYTE IMBALANCE [None]
  - EPILEPSY [None]
  - FALL [None]
  - FLUID RETENTION [None]
  - HAEMATOMA [None]
  - HEAD INJURY [None]
  - HYPOAESTHESIA [None]
  - MUSCULAR WEAKNESS [None]
  - PALPITATIONS [None]
  - SPINAL CORD INJURY [None]
  - SPINAL LIGAMENT OSSIFICATION [None]
  - TACHYCARDIA [None]
